FAERS Safety Report 20190590 (Version 1)
Quarter: 2021Q4

REPORT INFORMATION
  Report Type: Spontaneous
  Country: US (occurrence: None)
  Receive Date: 20211216
  Receipt Date: 20211216
  Transmission Date: 20220303
  Serious: No
  Sender: FDA-Public Use
  Company Number: US-MDD US Operations-SUP202104-000799

PATIENT
  Age: 32 Year
  Sex: Female

DRUGS (1)
  1. TROKENDI XR [Suspect]
     Active Substance: TOPIRAMATE
     Indication: Migraine
     Dosage: NOT PROVIDED

REACTIONS (1)
  - Drug ineffective [Unknown]
